FAERS Safety Report 19396599 (Version 2)
Quarter: 2021Q4

REPORT INFORMATION
  Report Type: Spontaneous
  Country: US (occurrence: US)
  Receive Date: 20210609
  Receipt Date: 20211008
  Transmission Date: 20220303
  Serious: No
  Sender: FDA-Public Use
  Company Number: US-SA-SAC20210608000697

PATIENT
  Age: 47 Year
  Sex: Female

DRUGS (1)
  1. AUBAGIO [Suspect]
     Active Substance: TERIFLUNOMIDE
     Indication: Multiple sclerosis
     Dosage: 14 MG, QD
     Route: 048
     Dates: start: 20171004

REACTIONS (7)
  - Neuralgia [Unknown]
  - Fatigue [Unknown]
  - Depression [Unknown]
  - Sexual dysfunction [Unknown]
  - Bladder disorder [Unknown]
  - Sensory disturbance [Unknown]
  - Pain [Unknown]

NARRATIVE: CASE EVENT DATE: 20210501
